FAERS Safety Report 7964310-3 (Version None)
Quarter: 2011Q4

REPORT INFORMATION
  Report Type: 
  Country: None (occurrence: None)
  Receive Date: 20111206
  Receipt Date: 20111123
  Transmission Date: 20120403
  Serious: Yes (Hospitalization, Other)
  Sender: FDA-Public Use
  Company Number: 2011MA016820

PATIENT
  Age: 36 Year
  Sex: Male

DRUGS (14)
  1. CLONAZEPAM [Suspect]
  2. HERBAL MEDICINE (NO PREF. NAME) [Suspect]
  3. CIPROFLOXACIN [Suspect]
  4. METRONIDAZOLE [Suspect]
  5. CLINDAMYCIN PHOSPHATE [Suspect]
  6. ANTIPLATELET (NO PREF. NAME) [Suspect]
  7. DIURETIC (NO PREF. NAME) [Suspect]
  8. VANCOMYCIN [Suspect]
  9. TIZANIDINE HCL [Suspect]
  10. ANTICONVULSANT (NO PREF. NAME) [Suspect]
  11. MEROPENEM [Suspect]
  12. IMIPENEM (IMIPENEM) [Suspect]
  13. ANTIBIOTICS (ANTIBIOTICS) [Suspect]
  14. CEFTRIAXONE [Suspect]

REACTIONS (4)
  - HEPATOCELLULAR INJURY [None]
  - SKIN ULCER [None]
  - HEPATOTOXICITY [None]
  - URINARY TRACT INFECTION [None]
